FAERS Safety Report 14486306 (Version 1)
Quarter: 2018Q1

REPORT INFORMATION
  Report Type: Spontaneous
  Country: US (occurrence: US)
  Receive Date: 20180205
  Receipt Date: 20180205
  Transmission Date: 20180509
  Serious: No
  Sender: FDA-Public Use
  Company Number: US-AMGEN-USASP2017163836

PATIENT
  Age: 81 Year
  Sex: Female
  Weight: 67.57 kg

DRUGS (1)
  1. NEULASTA [Suspect]
     Active Substance: PEGFILGRASTIM
     Indication: CONVALESCENT
     Dosage: 6 MG, UNK
     Route: 058
     Dates: start: 20170915

REACTIONS (5)
  - Wrong technique in product usage process [Unknown]
  - Drug dose omission [Unknown]
  - Accidental exposure to product [Unknown]
  - Off label use [Unknown]
  - Unintentional medical device removal [Unknown]

NARRATIVE: CASE EVENT DATE: 20170915
